FAERS Safety Report 11158663 (Version 1)
Quarter: 2015Q2

REPORT INFORMATION
  Report Type: Spontaneous
  Country: US (occurrence: None)
  Receive Date: 20150602
  Receipt Date: 20150602
  Transmission Date: 20150821
  Serious: Yes (Hospitalization)
  Sender: FDA-Public Use
  Company Number: None

PATIENT
  Age: 62 Year
  Sex: Male
  Weight: 102.5 kg

DRUGS (2)
  1. LORAZEPAM. [Suspect]
     Active Substance: LORAZEPAM
     Indication: ANXIETY
     Route: 048
     Dates: start: 20150324, end: 20150420
  2. VENLAFAXINE [Suspect]
     Active Substance: VENLAFAXINE HYDROCHLORIDE
     Indication: DEPRESSION
     Route: 048
     Dates: start: 20140616, end: 20150420

REACTIONS (9)
  - Dizziness [None]
  - Delirium [None]
  - Incontinence [None]
  - Headache [None]
  - Fall [None]
  - Somnolence [None]
  - Diplopia [None]
  - Gait disturbance [None]
  - Confusional state [None]

NARRATIVE: CASE EVENT DATE: 20150420
